FAERS Safety Report 6644912-7 (Version None)
Quarter: 2010Q1

REPORT INFORMATION
  Report Type: 
  Country: None (occurrence: None)
  Receive Date: 20100322
  Receipt Date: 20100309
  Transmission Date: 20100710
  Serious: Yes (Other)
  Sender: FDA-Public Use
  Company Number: PHHY2010FR14761

PATIENT
  Age: 79 Year
  Sex: Female

DRUGS (3)
  1. ZOMETA [Suspect]
     Dosage: 4 MG, UNK
     Dates: start: 20091126
  2. THALIDOMIDE [Concomitant]
     Dosage: 50 MG DAILY
  3. SOTALOL HCL [Concomitant]
     Dosage: 0.5 MG, Q48H

REACTIONS (1)
  - ATRIAL FIBRILLATION [None]
